FAERS Safety Report 21727315 (Version 3)
Quarter: 2023Q1

REPORT INFORMATION
  Report Type: Spontaneous
  Country: US (occurrence: None)
  Receive Date: 20221214
  Receipt Date: 20230203
  Transmission Date: 20230418
  Serious: Yes (Other)
  Sender: FDA-Public Use
  Company Number: 2022A400331

PATIENT
  Age: 88 Year
  Sex: Female

DRUGS (2)
  1. SYMBICORT [Suspect]
     Active Substance: BUDESONIDE\FORMOTEROL FUMARATE DIHYDRATE
     Indication: Chronic obstructive pulmonary disease
     Dosage: 160 UG, TWO PUFFS TWICE A DAY
     Route: 055
     Dates: start: 2006
  2. SYMBICORT [Suspect]
     Active Substance: BUDESONIDE\FORMOTEROL FUMARATE DIHYDRATE
     Indication: Chronic obstructive pulmonary disease
     Dosage: 160 UG, ONE PUFF TWICE A DAY
     Route: 055
     Dates: start: 2006

REACTIONS (7)
  - Visual impairment [Unknown]
  - Oesophageal polyp [Unknown]
  - Off label use [Unknown]
  - Intentional device misuse [Unknown]
  - Drug dose omission by device [Not Recovered/Not Resolved]
  - Product packaging quantity issue [Unknown]
  - Device use issue [Unknown]

NARRATIVE: CASE EVENT DATE: 20060101
